FAERS Safety Report 16820323 (Version 1)
Quarter: 2019Q3

REPORT INFORMATION
  Report Type: Spontaneous
  Country: US (occurrence: US)
  Receive Date: 20190918
  Receipt Date: 20190918
  Transmission Date: 20191005
  Serious: Yes (Hospitalization, Other)
  Sender: FDA-Public Use
  Company Number: US-HIKMA PHARMACEUTICALS USA INC.-US-H14001-19-04892

PATIENT
  Age: 75 Year
  Sex: Male

DRUGS (2)
  1. PREDNISONE. [Suspect]
     Active Substance: PREDNISONE
     Indication: BENIGN FAMILIAL PEMPHIGUS
     Route: 065
  2. CLOTRIMAZOLE/BETAMETHASONE [Suspect]
     Active Substance: BETAMETHASONE\CLOTRIMAZOLE
     Indication: BENIGN FAMILIAL PEMPHIGUS
     Route: 061

REACTIONS (1)
  - Eczema herpeticum [Unknown]
